FAERS Safety Report 21738930 (Version 1)
Quarter: 2022Q4

REPORT INFORMATION
  Report Type: Report from Study
  Country: US (occurrence: US)
  Receive Date: 20221216
  Receipt Date: 20221216
  Transmission Date: 20230113
  Serious: Yes (Other)
  Sender: FDA-Public Use
  Company Number: US-ABBVIE-4238543

PATIENT
  Age: 63 Year

DRUGS (2)
  1. HUMIRA [Suspect]
     Active Substance: ADALIMUMAB
     Indication: Rheumatoid arthritis
     Dosage: 40 MILLIGRAM?CITRATE FREE
     Route: 058
  2. HUMIRA [Suspect]
     Active Substance: ADALIMUMAB
     Route: 058
     Dates: start: 20221212

REACTIONS (4)
  - Spinal operation [Recovering/Resolving]
  - Blood potassium decreased [Unknown]
  - Nausea [Recovering/Resolving]
  - Blood magnesium decreased [Unknown]

NARRATIVE: CASE EVENT DATE: 20221201
